FAERS Safety Report 9305575 (Version 1)
Quarter: 2013Q2

REPORT INFORMATION
  Report Type: Spontaneous
  Country: US (occurrence: US)
  Receive Date: 20130523
  Receipt Date: 20130523
  Transmission Date: 20140414
  Serious: Yes (Death)
  Sender: FDA-Public Use
  Company Number: US-COVIDIEN/TYCO HEALTHCARE/MALLINCKRODT-T201300356

PATIENT
  Age: 57 Year
  Sex: Female

DRUGS (3)
  1. TOFRANIL [Suspect]
     Indication: IRRITABLE BOWEL SYNDROME
     Dosage: 25 MG, QD
     Route: 048
     Dates: start: 201212
  2. XANAX [Concomitant]
     Indication: PANIC ATTACK
     Dosage: UNK
  3. LIBRAX                             /00847101/ [Concomitant]
     Indication: IRRITABLE BOWEL SYNDROME
     Dosage: UNK

REACTIONS (5)
  - Abdominal pain [Not Recovered/Not Resolved]
  - Irritable bowel syndrome [Not Recovered/Not Resolved]
  - Flatulence [Not Recovered/Not Resolved]
  - Malaise [Unknown]
  - Diarrhoea [Not Recovered/Not Resolved]
